FAERS Safety Report 17218446 (Version 1)
Quarter: 2019Q4

REPORT INFORMATION
  Report Type: Spontaneous
  Country: US (occurrence: US)
  Receive Date: 20191231
  Receipt Date: 20191231
  Transmission Date: 20200122
  Serious: Yes (Other)
  Sender: FDA-Public Use
  Company Number: US-LUPIN PHARMACEUTICALS INC.-2019-08395

PATIENT
  Age: 61 Year
  Sex: Female

DRUGS (2)
  1. ESZOPICLONE TABLETS, 2 MG [Suspect]
     Active Substance: ESZOPICLONE
     Indication: INSOMNIA
     Dosage: 2 MILLIGRAM, QD
     Route: 048
     Dates: start: 201910
  2. ESZOPICLONE TABLETS, 2 MG [Suspect]
     Active Substance: ESZOPICLONE
     Dosage: 2 MILLIGRAM, QD
     Route: 048
     Dates: start: 20191202, end: 20191205

REACTIONS (4)
  - Anaphylactic reaction [Unknown]
  - Product substitution issue [Unknown]
  - Throat tightness [Recovering/Resolving]
  - Muscle tightness [Recovering/Resolving]

NARRATIVE: CASE EVENT DATE: 201910
